FAERS Safety Report 16331149 (Version 1)
Quarter: 2019Q2

REPORT INFORMATION
  Report Type: Report from Study
  Country: US (occurrence: US)
  Receive Date: 20190520
  Receipt Date: 20190520
  Transmission Date: 20190711
  Serious: Yes (Other)
  Sender: FDA-Public Use
  Company Number: US-ACADIA PHARMACEUTICALS INC.-ACA-2019-011971

PATIENT
  Sex: Male

DRUGS (1)
  1. NUPLAZID [Suspect]
     Active Substance: PIMAVANSERIN TARTRATE
     Indication: DEMENTIA WITH LEWY BODIES
     Dosage: 34 MG, QD
     Route: 048
     Dates: end: 20190225

REACTIONS (4)
  - Off label use [Unknown]
  - Electrocardiogram QT prolonged [Unknown]
  - Sedation [Unknown]
  - Drug ineffective for unapproved indication [Unknown]
